FAERS Safety Report 17431829 (Version 4)
Quarter: 2020Q4

REPORT INFORMATION
  Report Type: Spontaneous
  Country: US (occurrence: US)
  Receive Date: 20200218
  Receipt Date: 20201022
  Transmission Date: 20210113
  Serious: Yes (Death, Other)
  Sender: FDA-Public Use
  Company Number: US-TEVA-2020-US-1185398

PATIENT

DRUGS (6)
  1. OXYMORPHONE [Suspect]
     Active Substance: OXYMORPHONE
     Route: 065
  2. FENTANYL. [Suspect]
     Active Substance: FENTANYL
     Route: 065
  3. HYDROCODONE [Suspect]
     Active Substance: HYDROCODONE
     Route: 065
  4. HEROIN [Suspect]
     Active Substance: DIAMORPHINE
     Route: 065
  5. TYLENOL [Suspect]
     Active Substance: ACETAMINOPHEN
     Route: 065
  6. OXYCODONE [Suspect]
     Active Substance: OXYCODONE
     Route: 065

REACTIONS (2)
  - Overdose [Fatal]
  - Toxicity to various agents [Unknown]
